FAERS Safety Report 5656940-9 (Version None)
Quarter: 2008Q1

REPORT INFORMATION
  Report Type: 
  Country: None (occurrence: None)
  Receive Date: 20080307
  Receipt Date: 20080307
  Transmission Date: 20080703
  Serious: Yes (Hospitalization)
  Sender: FDA-Public Use
  Company Number: None

PATIENT
  Sex: Female
  Weight: 60 kg

DRUGS (1)
  1. TAXOL [Suspect]
     Dosage: 290 MG

REACTIONS (2)
  - CATHETER RELATED INFECTION [None]
  - INCISION SITE COMPLICATION [None]
